FAERS Safety Report 24555624 (Version 1)
Quarter: 2024Q4

REPORT INFORMATION
  Report Type: Other
  Country: US (occurrence: US)
  Receive Date: 20241028
  Receipt Date: 20241028
  Transmission Date: 20250115
  Serious: Yes (Death, Hospitalization, Other)
  Sender: Velzen Pharma
  Company Number: US-Velzen pharma pvt ltd-2163943

PATIENT
  Age: 61 Year
  Sex: Male

DRUGS (1)
  1. THEOPHYLLINE [Suspect]
     Active Substance: THEOPHYLLINE
     Indication: Product used for unknown indication

REACTIONS (8)
  - Toxicity to various agents [Fatal]
  - Hypoxia [Unknown]
  - Hypotension [Unknown]
  - Atrial fibrillation [Unknown]
  - Shock [Unknown]
  - Generalised tonic-clonic seizure [Unknown]
  - Vasoplegia syndrome [Unknown]
  - Disseminated intravascular coagulation [Unknown]
